FAERS Safety Report 14011279 (Version 1)
Quarter: 2017Q3

REPORT INFORMATION
  Report Type: Spontaneous
  Country: FR (occurrence: FR)
  Receive Date: 20170926
  Receipt Date: 20170926
  Transmission Date: 20171128
  Serious: Yes (Other)
  Sender: FDA-Public Use
  Company Number: FR-MERCK KGAA-2027681

PATIENT
  Age: 75 Year
  Sex: Female

DRUGS (1)
  1. NOVOTHYROX [Suspect]
     Active Substance: LEVOTHYROXINE SODIUM
     Indication: THYROID CANCER
     Dates: start: 2017

REACTIONS (8)
  - Product formulation issue [None]
  - Nausea [None]
  - Eye haemorrhage [None]
  - Depression [None]
  - Facial paralysis [None]
  - Headache [None]
  - Pain in extremity [None]
  - Vertigo [None]

NARRATIVE: CASE EVENT DATE: 2017
